FAERS Safety Report 19082340 (Version 1)
Quarter: 2021Q2

REPORT INFORMATION
  Report Type: Spontaneous
  Country: AR (occurrence: AR)
  Receive Date: 20210401
  Receipt Date: 20210401
  Transmission Date: 20210717
  Serious: Yes (Death, Other)
  Sender: FDA-Public Use
  Company Number: AR-AUROBINDO-AUR-APL-2021-013711

PATIENT
  Age: 74 Year
  Sex: Male

DRUGS (2)
  1. BELINOSTAT [Suspect]
     Active Substance: BELINOSTAT
     Dosage: 500 MILLIGRAM, DAILY
     Route: 042
     Dates: start: 20201005
  2. BELINOSTAT [Suspect]
     Active Substance: BELINOSTAT
     Indication: NON-HODGKIN^S LYMPHOMA
     Dosage: 500 MILLIGRAM, DAILY
     Route: 048
     Dates: start: 20201005

REACTIONS (5)
  - Pain [Unknown]
  - Sepsis [Fatal]
  - Pneumonia [Fatal]
  - Disease progression [Fatal]
  - Multiple organ dysfunction syndrome [Fatal]

NARRATIVE: CASE EVENT DATE: 20200226
